FAERS Safety Report 8121265 (Version 3)
Quarter: 2012Q4

REPORT INFORMATION
  Report Type: 
  Country: DE (occurrence: DE)
  Receive Date: 20110906
  Receipt Date: 20121018
  Transmission Date: 20130627
  Serious: Yes (Other)
  Sender: FDA-Public Use
  Company Number: PHHY2011DE78289

PATIENT
  Sex: Male

DRUGS (2)
  1. FORADIL [Suspect]
     Indication: ASTHMA
  2. BUDESONIDE [Suspect]
     Indication: ASTHMA

REACTIONS (1)
  - Palpitations [Unknown]
